FAERS Safety Report 12077329 (Version 3)
Quarter: 2016Q1

REPORT INFORMATION
  Report Type: Spontaneous
  Country: CH (occurrence: FI)
  Receive Date: 20160215
  Receipt Date: 20160324
  Transmission Date: 20160526
  Serious: Yes (Death, Hospitalization)
  Sender: FDA-Public Use
  Company Number: CH-LPDUSPRD-20160119

PATIENT
  Age: 67 Year
  Sex: Female

DRUGS (13)
  1. SERETIDE [Concomitant]
     Active Substance: FLUTICASONE FUROATE\SALMETEROL XINAFOATE
     Dosage: DOSE NOT PROVIDED
     Route: 055
  2. KALEORID [Concomitant]
     Active Substance: POTASSIUM CHLORIDE
     Dosage: 3 GM DAILY
     Route: 048
  3. APURIN [Concomitant]
     Active Substance: ALLOPURINOL
     Dosage: 100 MG DAILY
     Route: 048
  4. PRIMASPAN [Concomitant]
     Active Substance: ASPIRIN
     Dosage: 100 MG DAILY
     Route: 048
  5. OBSIDAN FE++ [Concomitant]
     Dosage: 100 MG DAILY
     Route: 048
  6. FERINJECT [Suspect]
     Active Substance: FERRIC CARBOXYMALTOSE
     Dosage: 500 MG/ 250 ML 0.9%NACL
     Route: 041
     Dates: start: 20151030, end: 20151030
  7. FURESIS [Concomitant]
     Active Substance: FUROSEMIDE
     Dosage: 120 MG DAILY
     Route: 048
  8. NOVORAPID [Concomitant]
     Active Substance: INSULIN ASPART
     Dosage: DOSE NOT PROVIDED
     Route: 058
  9. RENAVIT/RENACARE [Concomitant]
     Dosage: 1 DOSAGE FORM (1 IN 1 D)
     Route: 048
  10. PREDNISOLONE. [Concomitant]
     Active Substance: PREDNISOLONE
     Dosage: 5 MG DAILY
     Route: 048
  11. LEVEMIR [Concomitant]
     Active Substance: INSULIN DETEMIR
     Dosage: 150 IU DAILY
     Route: 058
  12. MIRCERA [Concomitant]
     Active Substance: METHOXY POLYETHYLENE GLYCOL-EPOETIN BETA
     Dosage: DOSE NOT PROVIDED
     Route: 058
  13. BISOPROLOL [Concomitant]
     Active Substance: BISOPROLOL
     Dosage: 2.5 MG DAILY
     Route: 048

REACTIONS (2)
  - Calciphylaxis [Not Recovered/Not Resolved]
  - Pulmonary embolism [Fatal]

NARRATIVE: CASE EVENT DATE: 20151031
